FAERS Safety Report 6024305-6 (Version None)
Quarter: 2008Q4

REPORT INFORMATION
  Report Type: 
  Country: None (occurrence: None)
  Receive Date: 20081231
  Receipt Date: 20081222
  Transmission Date: 20090506
  Serious: Yes (Congenital Anomaly, Other)
  Sender: FDA-Public Use
  Company Number: US-PFIZER INC-2008051543

PATIENT
  Sex: Female

DRUGS (5)
  1. ZOLOFT [Suspect]
     Indication: DEPRESSION
     Dosage: 50 MG, UNK
     Route: 048
     Dates: start: 20070215
  2. ZOLOFT [Suspect]
     Indication: ANXIETY
  3. FOLIC ACID [Concomitant]
     Dosage: UNK
  4. VITAMIN TAB [Concomitant]
     Dosage: UNK
     Route: 048
  5. ASCORBIC ACID [Concomitant]
     Dosage: UNK
     Route: 048

REACTIONS (6)
  - ACIDOSIS [None]
  - ASTHENIA [None]
  - CONGENITAL ANOMALY [None]
  - DEVELOPMENTAL DELAY [None]
  - DRUG EXPOSURE DURING PREGNANCY [None]
  - HYPOPLASTIC LEFT HEART SYNDROME [None]
